FAERS Safety Report 4431115-X (Version None)
Quarter: 2004Q3

REPORT INFORMATION
  Report Type: 
  Country: None (occurrence: None)
  Receive Date: 20040817
  Receipt Date: 20040809
  Transmission Date: 20050211
  Serious: Yes (Death)
  Sender: FDA-Public Use
  Company Number: 2004UW16821

PATIENT
  Age: 56 Year
  Sex: Male

DRUGS (2)
  1. CASODEX [Suspect]
     Indication: PROSTATE CANCER
     Dosage: 150 MG PO
     Route: 048
     Dates: start: 20040101
  2. ENTROPHEN [Concomitant]

REACTIONS (5)
  - CARCINOMA [None]
  - DISEASE PROGRESSION [None]
  - METASTASES TO LIVER [None]
  - PLATELET COUNT DECREASED [None]
  - SURGERY [None]
